FAERS Safety Report 6611977-8 (Version None)
Quarter: 2010Q1

REPORT INFORMATION
  Report Type: 
  Country: None (occurrence: None)
  Receive Date: 20100303
  Receipt Date: 20100223
  Transmission Date: 20100710
  Serious: Yes (Hospitalization, Other)
  Sender: FDA-Public Use
  Company Number: DO-MILLENNIUM PHARMACEUTICALS, INC.-2010-00782

PATIENT

DRUGS (6)
  1. VELCADE [Suspect]
     Indication: MULTIPLE MYELOMA
     Dosage: 1.3 MG/M2, UNK
     Route: 042
     Dates: start: 20091214, end: 20091222
  2. CARVEDILOL [Concomitant]
     Indication: HYPERTENSION
     Dosage: 3.125 MG, QD
     Route: 048
  3. COUMADIN [Concomitant]
     Indication: DEEP VEIN THROMBOSIS
     Dosage: 5 MG, UNK
     Route: 048
  4. ALLOPURINOL [Concomitant]
     Indication: HYPERURICAEMIA
     Dosage: 300 MG, QD
     Route: 048
     Dates: start: 20091214
  5. LEVOSULPIRIDE [Concomitant]
     Dosage: UNK
     Route: 048
     Dates: start: 20091214
  6. DEXAMETHASONE [Concomitant]
     Indication: MULTIPLE MYELOMA
     Dosage: 40 MG, UNK
     Route: 042
     Dates: start: 20091214

REACTIONS (4)
  - HYPOTHERMIA [None]
  - MUSCLE CONTRACTURE [None]
  - PERIPHERAL SENSORIMOTOR NEUROPATHY [None]
  - RASH [None]
